FAERS Safety Report 9029679 (Version 1)
Quarter: 2013Q1

REPORT INFORMATION
  Report Type: Spontaneous
  Country: US (occurrence: US)
  Receive Date: 20130124
  Receipt Date: 20130124
  Transmission Date: 20140127
  Serious: Yes (Hospitalization, Other)
  Sender: FDA-Public Use
  Company Number: US-AMGEN-USASP2013003914

PATIENT
  Age: 85 Year
  Sex: Female

DRUGS (4)
  1. PROLIA [Suspect]
     Indication: OSTEOPOROSIS POSTMENOPAUSAL
     Dosage: UNK
     Dates: start: 201201
  2. AREDIA [Concomitant]
  3. ARIMIDEX [Concomitant]
  4. METOPROLOL [Concomitant]

REACTIONS (5)
  - Myocardial infarction [Unknown]
  - Bone cancer [Unknown]
  - Renal impairment [Unknown]
  - Atypical pneumonia [Unknown]
  - Bone pain [Unknown]
